FAERS Safety Report 10186732 (Version 1)
Quarter: 2014Q2

REPORT INFORMATION
  Report Type: Spontaneous
  Country: BR (occurrence: BR)
  Receive Date: 20140521
  Receipt Date: 20140521
  Transmission Date: 20141212
  Serious: Yes (Other)
  Sender: FDA-Public Use
  Company Number: PHHY2014BR058956

PATIENT
  Sex: Female
  Weight: 75 kg

DRUGS (9)
  1. TEGRETOL [Suspect]
     Indication: EPILEPSY
     Dosage: 800 MG, UNK
     Dates: start: 201401, end: 201405
  2. TEGRETOL [Suspect]
     Dosage: 2 DF, AT NIGHT (1 DF AT 9 PM AND 1 DF AT 10 PM)
  3. PROPANOLOL [Concomitant]
     Dosage: UNK UKN, UNK
     Dates: start: 201402
  4. NATRILIX [Concomitant]
     Dosage: UNK UKN, UNK
     Dates: start: 201402
  5. ZOLPIDEM [Concomitant]
     Dosage: UNK UKN, UNK
     Dates: start: 201401
  6. RIVOTRIL [Concomitant]
     Dosage: UNK UKN, UNK
  7. ALEKTOS [Concomitant]
     Dosage: UNK UKN, UNK
  8. LEVOID [Concomitant]
     Dosage: UNK UKN, UNK
  9. REDUCLIM [Concomitant]
     Dosage: UNK UKN, UNK

REACTIONS (6)
  - Skin plaque [Recovering/Resolving]
  - Syncope [Recovering/Resolving]
  - Haemodynamic instability [Unknown]
  - Malaise [Recovering/Resolving]
  - Decreased activity [Recovering/Resolving]
  - Headache [Recovering/Resolving]
